FAERS Safety Report 17200704 (Version 1)
Quarter: 2019Q4

REPORT INFORMATION
  Report Type: Spontaneous
  Country: TH (occurrence: TH)
  Receive Date: 20191226
  Receipt Date: 20191226
  Transmission Date: 20200122
  Serious: Yes (Hospitalization, Other)
  Sender: FDA-Public Use
  Company Number: TH-LUPIN PHARMACEUTICALS INC.-2019-08502

PATIENT
  Age: 61 Year
  Sex: Female

DRUGS (6)
  1. CALCIUM [Suspect]
     Active Substance: CALCIUM
     Indication: POST PROCEDURAL HYPOTHYROIDISM
     Dosage: INCREASED UP TO 4,800 MG
     Route: 065
  2. CALCIUM [Suspect]
     Active Substance: CALCIUM
     Indication: POST PROCEDURAL HYPOPARATHYROIDISM
     Dosage: 2400 MILLIGRAM
     Route: 065
  3. ALFACALCIDOL [Suspect]
     Active Substance: ALFACALCIDOL
     Indication: POST PROCEDURAL HYPOTHYROIDISM
     Dosage: 1 MICROGRAM, QD
     Route: 065
  4. LEVOTHYROXINE. [Concomitant]
     Active Substance: LEVOTHYROXINE
     Indication: POST PROCEDURAL HYPOTHYROIDISM
     Dosage: 600 MICROGRAM PER WEEK
     Route: 065
  5. LEVOTHYROXINE. [Concomitant]
     Active Substance: LEVOTHYROXINE
     Indication: POST PROCEDURAL HYPOPARATHYROIDISM
  6. ALFACALCIDOL [Suspect]
     Active Substance: ALFACALCIDOL
     Indication: POST PROCEDURAL HYPOPARATHYROIDISM
     Dosage: 0.25 MCG TO 1 MCG/TABLET
     Route: 065

REACTIONS (1)
  - Milk-alkali syndrome [Recovered/Resolved]
